FAERS Safety Report 5104910-1 (Version None)
Quarter: 2006Q3

REPORT INFORMATION
  Report Type: 
  Country: None (occurrence: None)
  Receive Date: 20060914
  Receipt Date: 20060905
  Transmission Date: 20061208
  Serious: Yes (Hospitalization)
  Sender: FDA-Public Use
  Company Number: FR-ROCHE-462327

PATIENT
  Age: 67 Year
  Sex: Male

DRUGS (5)
  1. PEGASYS [Suspect]
     Route: 058
     Dates: start: 20060619, end: 20060807
  2. COPEGUS [Suspect]
     Route: 048
     Dates: start: 20060619, end: 20060807
  3. SERESTA [Suspect]
     Indication: DRUG USE FOR UNKNOWN INDICATION
     Route: 048
     Dates: start: 20060625, end: 20060823
  4. TARDYFERON [Suspect]
     Route: 048
     Dates: start: 20060427, end: 20060823
  5. DOLIPRANE [Suspect]
     Indication: DRUG USE FOR UNKNOWN INDICATION
     Route: 048
     Dates: end: 20060807

REACTIONS (1)
  - TOXIC EPIDERMAL NECROLYSIS [None]
